FAERS Safety Report 7341772-6 (Version None)
Quarter: 2011Q1

REPORT INFORMATION
  Report Type: 
  Country: None (occurrence: None)
  Receive Date: 20110309
  Receipt Date: 20110303
  Transmission Date: 20110831
  Serious: Yes (Death, Hospitalization, Other)
  Sender: FDA-Public Use
  Company Number: DE-PFIZER INC-2010176471

PATIENT
  Age: 60 Year
  Sex: Male
  Weight: 82 kg

DRUGS (6)
  1. DELIX [Concomitant]
     Dosage: 2.5 MG, 1X/DAY
     Dates: start: 20090101
  2. PANTOZOL [Concomitant]
     Dosage: 20 MG, 1X/DAY
     Dates: start: 20090101
  3. TOREM [Concomitant]
     Dosage: 10 MG, 1X/DAY
  4. TRAMADOL HCL [Concomitant]
     Dosage: 100 MG, 2X/DAY
     Dates: start: 20090101
  5. REVATIO [Suspect]
     Indication: PULMONARY ARTERIAL HYPERTENSION
     Dosage: 20 MG, 3X/DAY
     Route: 048
     Dates: start: 20101001
  6. INSPRA [Concomitant]
     Dosage: 25 MG, 1X/DAY
     Dates: start: 20090101

REACTIONS (14)
  - BLOOD GLUCOSE DECREASED [None]
  - CEREBRAL HAEMORRHAGE [None]
  - APHASIA [None]
  - MUSCULAR WEAKNESS [None]
  - HEPATIC FAILURE [None]
  - MULTI-ORGAN FAILURE [None]
  - HYPERTENSION [None]
  - PULMONARY HYPERTENSION [None]
  - BLOOD PRESSURE ABNORMAL [None]
  - RENAL FAILURE [None]
  - METABOLIC ACIDOSIS [None]
  - ACUTE RESPIRATORY FAILURE [None]
  - BLOOD SODIUM DECREASED [None]
  - HEPATORENAL SYNDROME [None]
